FAERS Safety Report 8818334 (Version 2)
Quarter: 2012Q4

REPORT INFORMATION
  Report Type: 
  Country: GB (occurrence: GB)
  Receive Date: 20121001
  Receipt Date: 20121008
  Transmission Date: 20130627
  Serious: Yes (Other)
  Sender: FDA-Public Use
  Company Number: GB-009507513-1209GBR007841

PATIENT

DRUGS (3)
  1. ISENTRESS [Suspect]
     Dosage: UNK
     Route: 048
     Dates: start: 20120816
  2. ABACAVIR [Suspect]
     Dosage: UNK
     Dates: start: 20120816
  3. DARUNAVIR [Suspect]
     Dosage: UNK
     Dates: start: 20120812

REACTIONS (1)
  - Drug reaction with eosinophilia and systemic symptoms [Unknown]
